FAERS Safety Report 9169816 (Version 1)
Quarter: 2013Q1

REPORT INFORMATION
  Report Type: Spontaneous
  Country: US (occurrence: US)
  Receive Date: 20130318
  Receipt Date: 20130318
  Transmission Date: 20140127
  Serious: No
  Sender: FDA-Public Use
  Company Number: US-009507513-1303USA005285

PATIENT
  Age: 69 Year
  Sex: Male

DRUGS (4)
  1. ZOCOR [Suspect]
     Dosage: 40 MG, QD
     Route: 048
  2. VITAMINS (UNSPECIFIED) [Concomitant]
  3. ASPIRIN [Concomitant]
  4. OMEGA-3 MARINE TRIGLYCERIDES [Concomitant]

REACTIONS (3)
  - Neck pain [Not Recovered/Not Resolved]
  - Arthralgia [Not Recovered/Not Resolved]
  - Myalgia [Not Recovered/Not Resolved]
